FAERS Safety Report 11882757 (Version 5)
Quarter: 2015Q4

REPORT INFORMATION
  Report Type: Spontaneous
  Country: US (occurrence: US)
  Receive Date: 20151231
  Receipt Date: 20151231
  Transmission Date: 20160305
  Serious: Yes (Other)
  Sender: FDA-Public Use
  Company Number: US-SA-2015SA221488

PATIENT
  Sex: Female

DRUGS (3)
  1. ICY HOT MEDICATED NO MESS APPLICATOR [Suspect]
     Active Substance: MENTHOL
     Route: 061
  2. ICY HOT MEDICATED NO MESS APPLICATOR [Suspect]
     Active Substance: MENTHOL
     Route: 061
  3. ICY HOT MEDICATED NO MESS APPLICATOR [Suspect]
     Active Substance: MENTHOL
     Route: 061

REACTIONS (5)
  - Erythema [Unknown]
  - Skin exfoliation [Unknown]
  - Chemical injury [Unknown]
  - Blister [Unknown]
  - Pruritus [Unknown]
